FAERS Safety Report 15665376 (Version 1)
Quarter: 2018Q4

REPORT INFORMATION
  Report Type: Spontaneous
  Country: TR (occurrence: TR)
  Receive Date: 20181128
  Receipt Date: 20181128
  Transmission Date: 20190205
  Serious: Yes (Other)
  Sender: FDA-Public Use
  Company Number: TR-PFIZER INC-2018483648

PATIENT
  Age: 55 Year
  Sex: Female

DRUGS (1)
  1. SUNITINIB MALATE. [Suspect]
     Active Substance: SUNITINIB MALATE
     Indication: RENAL CELL CARCINOMA
     Dosage: UNK
     Dates: start: 201311

REACTIONS (4)
  - Hepatic steatosis [Unknown]
  - Haemangioma of liver [Unknown]
  - Neoplasm progression [Unknown]
  - Cyst [Unknown]

NARRATIVE: CASE EVENT DATE: 201410
